FAERS Safety Report 7335413-1 (Version None)
Quarter: 2011Q1

REPORT INFORMATION
  Report Type: 
  Country: None (occurrence: None)
  Receive Date: 20110307
  Receipt Date: 20110304
  Transmission Date: 20110831
  Serious: Yes (Death)
  Sender: FDA-Public Use
  Company Number: GXKR2011DE01117

PATIENT
  Age: 31 Year
  Sex: Male

DRUGS (4)
  1. FLUOXETIN HEXAL [Suspect]
     Dosage: 180 MG DAILY FOR 3 MONTHS
     Route: 048
  2. NITOMAN [Concomitant]
     Route: 065
  3. NEUROCIL [Concomitant]
     Route: 048
  4. DIAZEPAM [Concomitant]
     Route: 048

REACTIONS (3)
  - VOMITING [None]
  - HEPATIC FAILURE [None]
  - RENAL FAILURE [None]
